FAERS Safety Report 12703942 (Version 1)
Quarter: 2016Q3

REPORT INFORMATION
  Report Type: Spontaneous
  Country: CN (occurrence: CN)
  Receive Date: 20160831
  Receipt Date: 20160831
  Transmission Date: 20161109
  Serious: Yes (Life-Threatening, Other)
  Sender: FDA-Public Use
  Company Number: CN-SYMPLMED PHARMACEUTICALS-2016SYMPLMED000310

PATIENT

DRUGS (3)
  1. PERINDOPRIL ERBUMINE. [Suspect]
     Active Substance: PERINDOPRIL ERBUMINE
     Indication: HYPERTENSION
     Dosage: 4 MG, QD
     Route: 048
  2. NIFEDIPINE. [Concomitant]
     Active Substance: NIFEDIPINE
     Indication: HYPERTENSION
     Dosage: 20 MG, BID
     Route: 048
  3. AROTINOLOL [Concomitant]
     Active Substance: AROTINOLOL
     Indication: HYPERTENSION
     Dosage: 10 MG, BID
     Route: 048

REACTIONS (4)
  - Cardiogenic shock [Recovered/Resolved]
  - Ventricular arrhythmia [Recovered/Resolved]
  - Hypotension [Recovered/Resolved]
  - Hyperkalaemia [Recovered/Resolved]

NARRATIVE: CASE EVENT DATE: 2016
